FAERS Safety Report 14582016 (Version 1)
Quarter: 2018Q1

REPORT INFORMATION
  Report Type: Spontaneous
  Country: US (occurrence: US)
  Receive Date: 20180228
  Receipt Date: 20180228
  Transmission Date: 20180509
  Serious: No
  Sender: FDA-Public Use
  Company Number: US-GLAXOSMITHKLINE-US2018031171

PATIENT
  Sex: Female

DRUGS (8)
  1. CLARITIN TABLET [Concomitant]
  2. FIORICET [Concomitant]
     Active Substance: ACETAMINOPHEN\BUTALBITAL\CAFFEINE
  3. PLAQUENIL [Concomitant]
     Active Substance: HYDROXYCHLOROQUINE SULFATE
  4. SINGULAIR [Concomitant]
     Active Substance: MONTELUKAST SODIUM
  5. BENLYSTA [Suspect]
     Active Substance: BELIMUMAB
     Indication: SYSTEMIC LUPUS ERYTHEMATOSUS
     Dosage: UNK UNK, CYC
     Route: 041
  6. ZOLOFT [Concomitant]
     Active Substance: SERTRALINE HYDROCHLORIDE
  7. BENLYSTA [Suspect]
     Active Substance: BELIMUMAB
     Indication: SYSTEMIC LUPUS ERYTHEMATOSUS
     Dosage: UNK
     Route: 042
  8. FLONASE [Concomitant]
     Active Substance: FLUTICASONE PROPIONATE

REACTIONS (3)
  - Fatigue [Not Recovered/Not Resolved]
  - Drug dose omission [Unknown]
  - Pyrexia [Not Recovered/Not Resolved]
